FAERS Safety Report 8498577-2 (Version None)
Quarter: 2012Q3

REPORT INFORMATION
  Report Type: 
  Country: None (occurrence: None)
  Receive Date: 20120709
  Receipt Date: 20120627
  Transmission Date: 20120928
  Serious: No
  Sender: FDA-Public Use
  Company Number: US-AMGEN-USASP2012039832

PATIENT
  Age: 31 Year
  Sex: Male

DRUGS (1)
  1. ENBREL [Suspect]
     Indication: ANKYLOSING SPONDYLITIS
     Dosage: 50 MG, QWK
     Dates: start: 20090823, end: 20120301

REACTIONS (6)
  - ASTHENIA [None]
  - FATIGUE [None]
  - PAIN [None]
  - RESPIRATORY TRACT CONGESTION [None]
  - BLOOD TESTOSTERONE DECREASED [None]
  - MALAISE [None]
